FAERS Safety Report 20530298 (Version 7)
Quarter: 2023Q2

REPORT INFORMATION
  Report Type: Spontaneous
  Country: JP (occurrence: JP)
  Receive Date: 20220301
  Receipt Date: 20230614
  Transmission Date: 20230721
  Serious: Yes (Death, Hospitalization, Disabling, Other)
  Sender: FDA-Public Use
  Company Number: JP-AMGEN-JPNSP2022033282

PATIENT
  Age: 66 Year
  Sex: Female

DRUGS (9)
  1. EVENITY [Suspect]
     Active Substance: ROMOSOZUMAB-AQQG
     Indication: Osteoporosis
     Dosage: 210 MILLIGRAM, QMO
     Route: 058
     Dates: start: 20210202
  2. ROXADUSTAT [Suspect]
     Active Substance: ROXADUSTAT
     Indication: Nephrogenic anaemia
     Dosage: 100 MILLIGRAM, 3 TIMES/WEEK
     Route: 065
     Dates: start: 20210121, end: 20210513
  3. DARBEPOETIN ALFA [Concomitant]
     Active Substance: DARBEPOETIN ALFA
     Dosage: 90 MICROGRAM
     Route: 065
     Dates: start: 20201219, end: 20210109
  4. DARBEPOETIN ALFA [Concomitant]
     Active Substance: DARBEPOETIN ALFA
     Dosage: 120 MICROGRAM
     Route: 065
     Dates: start: 20210116
  5. DARBEPOETIN ALFA [Concomitant]
     Active Substance: DARBEPOETIN ALFA
     Dosage: 120 MICROGRAM, QWK
     Route: 065
     Dates: start: 20200502, end: 20210116
  6. DARBEPOETIN ALFA [Concomitant]
     Active Substance: DARBEPOETIN ALFA
     Dosage: 180 MICROGRAM, QWK
     Route: 065
     Dates: start: 20210513, end: 20221112
  7. Fesin [Concomitant]
     Dosage: 40 MILLIGRAM, QWK
     Route: 065
     Dates: start: 20210116, end: 20210206
  8. TIAPRIDE [Concomitant]
     Active Substance: TIAPRIDE
     Indication: Product used for unknown indication
     Dosage: 25 MILLIGRAM
     Route: 065
     Dates: start: 20210316
  9. FERRIC CITRATE ANHYDROUS [Concomitant]
     Active Substance: FERRIC CITRATE ANHYDROUS
     Dosage: 750 MILLIGRAM, QD, 500 MILLIGRAM, QD
     Route: 065

REACTIONS (9)
  - Sudden death [Fatal]
  - Femoral neck fracture [Recovered/Resolved]
  - Femur fracture [Recovered/Resolved]
  - Hepatic encephalopathy [Recovered/Resolved]
  - High density lipoprotein decreased [Recovered/Resolved]
  - Hypoalbuminaemia [Recovered/Resolved]
  - Post procedural haemorrhage [Recovered/Resolved]
  - Fall [Recovered/Resolved]
  - Post procedural haematoma [Unknown]

NARRATIVE: CASE EVENT DATE: 20210209
